FAERS Safety Report 8795487 (Version 2)
Quarter: 2015Q2

REPORT INFORMATION
  Report Type: Report from Study
  Country: US (occurrence: US)
  Receive Date: 20120917
  Receipt Date: 20150420
  Transmission Date: 20150821
  Serious: Yes (Death, Hospitalization)
  Sender: FDA-Public Use
  Company Number: US-ROCHE-CID000000002105542

PATIENT
  Age: 51 Year
  Sex: Female
  Weight: 151 kg

DRUGS (33)
  1. ELOXATIN [Suspect]
     Active Substance: OXALIPLATIN
     Indication: COLON CANCER
     Dosage: THERAPY DATES: 14/NOV/2000, 14/NOV/2002?DOSE: 85 MG/M2
     Route: 042
  2. PREMPRO [Concomitant]
     Active Substance: ESTROGENS, CONJUGATED\MEDROXYPROGESTERONE ACETATE
  3. KYTRIL [Concomitant]
     Active Substance: GRANISETRON HYDROCHLORIDE
     Indication: NAUSEA
     Dosage: AS NEEDED
     Route: 042
  4. ATROPIN [Concomitant]
     Route: 042
  5. DECADRON [Concomitant]
     Active Substance: DEXAMETHASONE
     Route: 042
  6. DECADRON [Concomitant]
     Active Substance: DEXAMETHASONE
     Dosage: AS NEEDED
     Route: 065
  7. LEUCOVORIN [Concomitant]
     Active Substance: LEUCOVORIN
     Route: 042
  8. 5-FLUOROURACIL [Concomitant]
     Active Substance: FLUOROURACIL
     Route: 065
  9. INDERAL LA [Concomitant]
     Active Substance: PROPRANOLOL HYDROCHLORIDE
     Route: 065
  10. CODEINE SULFATE. [Concomitant]
     Active Substance: CODEINE SULFATE
     Indication: COUGH
     Dosage: AS NEEDED
     Route: 065
  11. VORINOSTAT [Concomitant]
     Active Substance: VORINOSTAT
     Route: 065
  12. ERBITUX [Suspect]
     Active Substance: CETUXIMAB
     Indication: PRODUCT USED FOR UNKNOWN INDICATION
     Dosage: THERAPY DATES: 05/JUL/2005, 19/JUL/2005, 26/JUL/2005, 02/AUG/2005, 16/AUG/2005, 23/AUG/2005, 30/AUG/
     Route: 042
     Dates: start: 200507
  13. BENADRYL [Concomitant]
     Active Substance: DIPHENHYDRAMINE HYDROCHLORIDE
     Route: 065
  14. LEVAQUIN [Concomitant]
     Active Substance: LEVOFLOXACIN
     Dosage: THERAPY DATES: 06/JUN/2006
     Route: 042
  15. NEULASTA [Concomitant]
     Active Substance: PEGFILGRASTIM
     Route: 065
  16. NEUPOGEN [Concomitant]
     Active Substance: FILGRASTIM
     Route: 065
  17. AVASTIN [Suspect]
     Active Substance: BEVACIZUMAB
     Indication: COLON CANCER
     Route: 042
     Dates: start: 20040402
  18. ELOXATIN [Suspect]
     Active Substance: OXALIPLATIN
     Dosage: THERAPY DATES: 03/FEB/2005?130 MG/M2
     Route: 042
  19. COMPAZINE [Concomitant]
     Active Substance: PROCHLORPERAZINE MALEATE
     Indication: NAUSEA
     Dosage: AS NEEDED
     Route: 065
  20. TRICOR [Concomitant]
     Active Substance: FENOFIBRATE
     Route: 065
  21. 5-FLUOROURACIL [Concomitant]
     Active Substance: FLUOROURACIL
     Dosage: 600 MG/M2
     Route: 065
  22. ALOXI [Concomitant]
     Active Substance: PALONOSETRON HYDROCHLORIDE
     Route: 065
  23. AVASTIN [Suspect]
     Active Substance: BEVACIZUMAB
     Dosage: THERAPY DATES: 29/NOV/2002, 08/NOV/2005,  29/NOV/2005, 13/DEC/2005, 27/DEC/2005, 10/JAN/2006, 24/JAN
     Route: 042
  24. LEUCOVORIN [Concomitant]
     Active Substance: LEUCOVORIN
     Dosage: 200 MG/M2 ON DAY 2?THERAPY DATES: 14/NOV/2000
     Route: 042
  25. CAMPTOSAR [Concomitant]
     Active Substance: IRINOTECAN HYDROCHLORIDE
     Route: 065
  26. 5-FLUOROURACIL [Concomitant]
     Active Substance: FLUOROURACIL
     Dosage: 400 MG/M2
     Route: 040
  27. NEXIUM [Concomitant]
     Active Substance: ESOMEPRAZOLE MAGNESIUM
     Route: 065
  28. PREMARIN [Concomitant]
     Active Substance: ESTROGENS, CONJUGATED
  29. XELODA [Suspect]
     Active Substance: CAPECITABINE
     Indication: COLORECTAL CANCER
     Dosage: DOSE: 1500 MG, EVERY DAY BEFORE NOON AND 1000 MG EVERY DAY AFTER NOON OR EVERY EVENING ON DAY 1-14 B
     Route: 048
     Dates: start: 20050408
  30. ATIVAN [Concomitant]
     Active Substance: LORAZEPAM
     Route: 042
  31. NORVASC [Concomitant]
     Active Substance: AMLODIPINE BESYLATE
     Route: 065
  32. ANZEMET [Concomitant]
     Active Substance: DOLASETRON MESYLATE
     Route: 042
  33. ARANESP [Concomitant]
     Active Substance: DARBEPOETIN ALFA
     Route: 065

REACTIONS (21)
  - Dysuria [Unknown]
  - Colon cancer recurrent [Unknown]
  - Diarrhoea [Unknown]
  - Palmar-plantar erythrodysaesthesia syndrome [Unknown]
  - Lacrimation increased [Unknown]
  - Rash erythematous [Unknown]
  - Rash maculo-papular [Unknown]
  - Weight decreased [Unknown]
  - Decreased appetite [Unknown]
  - Death [Fatal]
  - Disease progression [Unknown]
  - Metastases to lung [Unknown]
  - Anaemia [Unknown]
  - Oedema peripheral [Unknown]
  - Headache [Unknown]
  - Dry skin [Unknown]
  - Lymphadenopathy [Unknown]
  - Anaphylactic reaction [Unknown]
  - Rash [Unknown]
  - Neutropenia [Unknown]
  - Palmar erythema [Unknown]

NARRATIVE: CASE EVENT DATE: 20061012
